FAERS Safety Report 4395568-8 (Version None)
Quarter: 2004Q3

REPORT INFORMATION
  Report Type: 
  Country: None (occurrence: None)
  Receive Date: 20040709
  Receipt Date: 20040625
  Transmission Date: 20050211
  Serious: Yes (Other)
  Sender: FDA-Public Use
  Company Number: US-JNJFOC-20040608290

PATIENT
  Age: 57 Year
  Sex: Female
  Weight: 76.6579 kg

DRUGS (7)
  1. REMICADE [Suspect]
     Indication: RHEUMATOID ARTHRITIS
     Dosage: INTRAVENOUS
     Route: 042
     Dates: start: 20010419, end: 20010920
  2. HUMIRA [Concomitant]
  3. ENBREL [Concomitant]
  4. METHOTREXATE SODIUM [Concomitant]
  5. CELEBREX [Concomitant]
  6. METHODONE (METHADONE) [Concomitant]
  7. PAXIL [Concomitant]

REACTIONS (2)
  - DRUG INEFFECTIVE [None]
  - MALIGNANT MELANOMA [None]
